FAERS Safety Report 8919278 (Version 1)
Quarter: 2012Q4

REPORT INFORMATION
  Report Type: 
  Country: US (occurrence: US)
  Receive Date: 20121121
  Receipt Date: 20121121
  Transmission Date: 20130627
  Serious: Yes (Other)
  Sender: FDA-Public Use
  Company Number: US-PFIZER INC-2012287303

PATIENT
  Sex: Male

DRUGS (2)
  1. VFEND [Suspect]
     Dosage: UNK
     Route: 048
     Dates: start: 20120628, end: 2012
  2. VFEND [Suspect]
     Dosage: UNK
     Route: 042
     Dates: start: 2012

REACTIONS (2)
  - Renal failure [Unknown]
  - Diarrhoea [Unknown]
